FAERS Safety Report 23309383 (Version 5)
Quarter: 2024Q1

REPORT INFORMATION
  Report Type: Spontaneous
  Country: US (occurrence: US)
  Receive Date: 20231218
  Receipt Date: 20240117
  Transmission Date: 20240409
  Serious: No
  Sender: FDA-Public Use
  Company Number: US-BIOGEN-2023BI01217338

PATIENT
  Age: 53 Year
  Sex: Female

DRUGS (4)
  1. PLEGRIDY [Suspect]
     Active Substance: PEGINTERFERON BETA-1A
     Indication: Multiple sclerosis
     Route: 050
     Dates: start: 20230720, end: 20230802
  2. PLEGRIDY [Suspect]
     Active Substance: PEGINTERFERON BETA-1A
     Route: 050
     Dates: start: 20230803, end: 20230816
  3. PLEGRIDY [Suspect]
     Active Substance: PEGINTERFERON BETA-1A
     Route: 050
     Dates: start: 20230817
  4. PLEGRIDY [Suspect]
     Active Substance: PEGINTERFERON BETA-1A
     Indication: Multiple sclerosis
     Route: 050

REACTIONS (8)
  - Gait disturbance [Unknown]
  - Fatigue [Unknown]
  - Limb discomfort [Recovered/Resolved with Sequelae]
  - Motor dysfunction [Recovered/Resolved with Sequelae]
  - Headache [Not Recovered/Not Resolved]
  - Pyrexia [Unknown]
  - Pain [Recovered/Resolved with Sequelae]
  - Injection site erythema [Recovered/Resolved with Sequelae]

NARRATIVE: CASE EVENT DATE: 20230720
